FAERS Safety Report 8288109-6 (Version None)
Quarter: 2012Q2

REPORT INFORMATION
  Report Type: 
  Country: None (occurrence: None)
  Receive Date: 20120416
  Receipt Date: 20120404
  Transmission Date: 20120825
  Serious: Yes (Hospitalization, Other)
  Sender: FDA-Public Use
  Company Number: CA-ELI_LILLY_AND_COMPANY-CA201204002201

PATIENT
  Age: 33 Year
  Sex: Male

DRUGS (11)
  1. TACROLIMUS [Concomitant]
  2. VITAMIN D [Concomitant]
  3. FOLIC ACID [Concomitant]
  4. CYMBALTA [Concomitant]
  5. PREDNISONE TAB [Concomitant]
  6. URSODIOL [Concomitant]
  7. FORTEO [Suspect]
     Indication: OSTEOPOROSIS
     Dosage: 20 UG, QD
     Route: 058
     Dates: start: 20111005, end: 20120117
  8. LYRICA [Concomitant]
  9. CALCIUM CARBONATE [Concomitant]
  10. MYCOPHENOLATE MOFETIL [Concomitant]
  11. TRAZODONE HCL [Concomitant]

REACTIONS (4)
  - POLYDIPSIA [None]
  - HOSPITALISATION [None]
  - TYPE 2 DIABETES MELLITUS [None]
  - FATIGUE [None]
